FAERS Safety Report 9793011 (Version 1)
Quarter: 2014Q1

REPORT INFORMATION
  Report Type: Report from Study
  Country: CA (occurrence: CA)
  Receive Date: 20140102
  Receipt Date: 20140102
  Transmission Date: 20141002
  Serious: Yes (Hospitalization)
  Sender: FDA-Public Use
  Company Number: CA-JNJFOC-20131216750

PATIENT
  Age: 27 Year
  Sex: Female
  Weight: 60 kg

DRUGS (8)
  1. REMICADE [Suspect]
     Indication: COLITIS ULCERATIVE
     Route: 042
  2. REMICADE [Suspect]
     Indication: COLITIS ULCERATIVE
     Route: 042
     Dates: start: 20121113
  3. IMURAN [Concomitant]
     Dosage: DIE
     Route: 065
  4. CALCIUM [Concomitant]
     Route: 065
  5. MICRONOR [Concomitant]
     Dosage: 28 (UNITS UNSPECIFIED) DIE
     Route: 065
  6. VITAMIN D [Concomitant]
     Dosage: 400 UI
     Route: 065
  7. IRON [Concomitant]
     Route: 065
  8. ACTONEL [Concomitant]
     Route: 065

REACTIONS (4)
  - Diarrhoea haemorrhagic [Unknown]
  - Abdominal pain [Unknown]
  - Haemoglobin decreased [Unknown]
  - Decreased appetite [Unknown]
